FAERS Safety Report 7090684-4 (Version None)
Quarter: 2010Q4

REPORT INFORMATION
  Report Type: 
  Country: None (occurrence: None)
  Receive Date: 20101109
  Receipt Date: 20091007
  Transmission Date: 20110411
  Serious: No
  Sender: FDA-Public Use
  Company Number: US-KINGPHARMUSA00001-K200901248

PATIENT
  Age: 84 Year
  Sex: Male
  Weight: 72.562 kg

DRUGS (1)
  1. FLECTOR [Suspect]
     Indication: ARTHRALGIA
     Dosage: 1/4 PATCH, SINGLE
     Route: 061
     Dates: start: 20090101, end: 20090101

REACTIONS (2)
  - APPLICATION SITE PAIN [None]
  - MUSCLE SPASMS [None]
